FAERS Safety Report 5354714-X (Version None)
Quarter: 2007Q2

REPORT INFORMATION
  Report Type: 
  Country: None (occurrence: None)
  Receive Date: 20070611
  Receipt Date: 20070528
  Transmission Date: 20071010
  Serious: Yes (Other)
  Sender: FDA-Public Use
  Company Number: CHNY2007FI02054

PATIENT
  Sex: Male

DRUGS (1)
  1. NICOTINE [Suspect]
     Indication: SMOKING CESSATION THERAPY
     Dosage: TRANSDERMAL
     Route: 062

REACTIONS (2)
  - ABSCESS [None]
  - PRURITUS [None]
